FAERS Safety Report 24225421 (Version 1)
Quarter: 2024Q3

REPORT INFORMATION
  Report Type: Spontaneous
  Country: GB (occurrence: GB)
  Receive Date: 20240820
  Receipt Date: 20240820
  Transmission Date: 20241017
  Serious: Yes (Other)
  Sender: NOVO NORDISK
  Company Number: GB-MHRA-TPP20131233C7436966YC1723105314778

PATIENT
  Age: 62 Year
  Sex: Male
  Weight: 106 kg

DRUGS (9)
  1. RYBELSUS [Suspect]
     Active Substance: SEMAGLUTIDE
     Indication: Ill-defined disorder
     Dosage: 3 MG, QD (TAKE ONE DAILY ON AN EMPTY STOMACH WITH A SIP O)
     Dates: start: 20240119
  2. MOMETASONE [Concomitant]
     Active Substance: MOMETASONE
     Indication: Ill-defined disorder
     Dosage: UNK, TWO SPRAYS INTO EACH NOSTRIL TWICE A DAY FOR 14...
     Dates: start: 20240529, end: 20240612
  3. ALBUTEROL [Concomitant]
     Active Substance: ALBUTEROL
     Indication: Ill-defined disorder
     Dosage: UNK, INHALE 1-2 PUFFS  UPTO FOUR TIMES A DAY WHEN RE...
     Dates: start: 20240718
  4. GLICLAZIDE [Concomitant]
     Active Substance: GLICLAZIDE
     Indication: Ill-defined disorder
     Dosage: UNK, TAKE 2 TWICE DAILY
     Dates: start: 20140205
  5. METFORMIN [Concomitant]
     Active Substance: METFORMIN HYDROCHLORIDE
     Indication: Ill-defined disorder
     Dosage: UNK, TAKE ONE TO BE TAKEN THREE TIMES DAILY
     Dates: start: 20140205
  6. EMPAGLIFLOZIN [Concomitant]
     Active Substance: EMPAGLIFLOZIN
     Indication: Ill-defined disorder
     Dosage: UNK, TAKE ONE DAILY
     Dates: start: 20170627
  7. SHARPSGUARD [Concomitant]
     Indication: Ill-defined disorder
     Dosage: UNK, USE AS DIRECTED
     Dates: start: 20200325, end: 20240808
  8. SILDENAFIL [Concomitant]
     Active Substance: SILDENAFIL
     Indication: Ill-defined disorder
     Dosage: UNK, USE AS DIRECTED
     Dates: start: 20200825
  9. ATORVASTATIN [Concomitant]
     Active Substance: ATORVASTATIN
     Indication: Ill-defined disorder
     Dosage: UNK, TAKE ONE DAILY
     Dates: start: 20230905

REACTIONS (1)
  - Polyuria [Recovered/Resolved]

NARRATIVE: CASE EVENT DATE: 20240718
